FAERS Safety Report 4825847-9 (Version None)
Quarter: 2005Q4

REPORT INFORMATION
  Report Type: 
  Country: None (occurrence: None)
  Receive Date: 20051109
  Receipt Date: 20051029
  Transmission Date: 20060501
  Serious: Yes (Hospitalization)
  Sender: FDA-Public Use
  Company Number: 200510IM000686

PATIENT
  Age: 52 Year
  Sex: Male
  Weight: 102.0593 kg

DRUGS (7)
  1. INFERGEN [Suspect]
     Indication: HEPATITIS C
     Dosage: 15 UG, QD, SUBCUTANEOUS
     Route: 058
     Dates: start: 20050829
  2. NEXIUM [Concomitant]
  3. ZOLOFT [Concomitant]
  4. AMILORIDE [Concomitant]
  5. LASIX [Concomitant]
  6. LACTULOSE [Concomitant]
  7. PROCRIT [Concomitant]

REACTIONS (4)
  - CELLULITIS [None]
  - INFECTION [None]
  - POOR PERIPHERAL CIRCULATION [None]
  - WEIGHT DECREASED [None]
